FAERS Safety Report 8106339-0 (Version None)
Quarter: 2012Q1

REPORT INFORMATION
  Report Type: 
  Country: None (occurrence: None)
  Receive Date: 20120202
  Receipt Date: 20120131
  Transmission Date: 20120608
  Serious: Yes (Hospitalization, Other)
  Sender: FDA-Public Use
  Company Number: US-JNJFOC-20100805221

PATIENT
  Sex: Female

DRUGS (1)
  1. LEVAQUIN [Suspect]
     Indication: RESPIRATORY DISORDER
     Route: 048
     Dates: start: 20060101, end: 20060101

REACTIONS (5)
  - TENDON RUPTURE [None]
  - EPICONDYLITIS [None]
  - MENISCUS LESION [None]
  - TENDONITIS [None]
  - ROTATOR CUFF SYNDROME [None]
